APPROVED DRUG PRODUCT: INFED
Active Ingredient: IRON DEXTRAN
Strength: EQ 100MG IRON/2ML (EQ 50MG IRON/ML)
Dosage Form/Route: INJECTABLE;INJECTION
Application: N017441 | Product #001 | TE Code: BP
Applicant: ALLERGAN SALES LLC
Approved: Approved Prior to Jan 1, 1982 | RLD: Yes | RS: Yes | Type: RX